FAERS Safety Report 21752272 (Version 1)
Quarter: 2022Q4

REPORT INFORMATION
  Report Type: Spontaneous
  Country: FR (occurrence: FR)
  Receive Date: 20221220
  Receipt Date: 20221220
  Transmission Date: 20230113
  Serious: Yes (Other)
  Sender: FDA-Public Use
  Company Number: FR-AFSSAPS-AVLY20220477

PATIENT
  Age: 26 Year
  Sex: Female

DRUGS (1)
  1. TRAMADOL [Suspect]
     Active Substance: TRAMADOL
     Indication: Product used for unknown indication
     Dosage: 1500 MILLIGRAM, ONCE A DAY (30 X 50 MG QUOTIDIENS RAPPORTES)(30 X 50 MG DAILY REPORTED)
     Route: 048
     Dates: start: 2021

REACTIONS (1)
  - Drug dependence [Unknown]

NARRATIVE: CASE EVENT DATE: 20220101
